FAERS Safety Report 24286027 (Version 1)
Quarter: 2024Q3

REPORT INFORMATION
  Report Type: Spontaneous
  Country: US (occurrence: US)
  Receive Date: 20240905
  Receipt Date: 20240905
  Transmission Date: 20241016
  Serious: Yes (Other)
  Sender: AMGEN
  Company Number: US-AMGEN-USASP2024174162

PATIENT
  Age: 54 Year

DRUGS (1)
  1. OTEZLA [Suspect]
     Active Substance: APREMILAST
     Indication: Product used for unknown indication
     Dosage: UNK (STARTER PACKS)
     Route: 065

REACTIONS (12)
  - Cerebrovascular accident [Unknown]
  - Intracranial aneurysm [Unknown]
  - Skin fissures [Unknown]
  - Skin haemorrhage [Unknown]
  - Product supply issue [Unknown]
  - Arthralgia [Unknown]
  - Nausea [Unknown]
  - Tension headache [Unknown]
  - Abdominal pain [Unknown]
  - Vomiting [Unknown]
  - Fatigue [Unknown]
  - Migraine [Unknown]
